FAERS Safety Report 5349982-4 (Version None)
Quarter: 2007Q2

REPORT INFORMATION
  Report Type: 
  Country: None (occurrence: None)
  Receive Date: 20070607
  Receipt Date: 20070524
  Transmission Date: 20071010
  Serious: Yes (Hospitalization)
  Sender: FDA-Public Use
  Company Number: US-SHR-US-2007-019054

PATIENT
  Age: 34 Year
  Sex: Female

DRUGS (2)
  1. BETASERON [Suspect]
     Indication: MULTIPLE SCLEROSIS
     Dosage: 8 MIU, EVERY 2D
     Route: 058
     Dates: start: 19980110
  2. VITAMIN B-12 [Concomitant]

REACTIONS (4)
  - EPSTEIN-BARR VIRUS INFECTION [None]
  - GAIT DISTURBANCE [None]
  - HEART RATE IRREGULAR [None]
  - HYPOAESTHESIA [None]
